FAERS Safety Report 5788525-8 (Version None)
Quarter: 2008Q2

REPORT INFORMATION
  Report Type: 
  Country: None (occurrence: None)
  Receive Date: 20080625
  Receipt Date: 20080625
  Transmission Date: 20081010
  Serious: No
  Sender: FDA-Public Use
  Company Number: None

PATIENT
  Sex: Male
  Weight: 22.6799 kg

DRUGS (4)
  1. SINGULAIR [Suspect]
     Indication: ASTHMA
     Dosage: 4 MG 1X DAY ORAL
     Route: 048
     Dates: start: 20070301, end: 20070901
  2. SINGULAIR [Suspect]
     Indication: HYPERSENSITIVITY
     Dosage: 4 MG 1X DAY ORAL
     Route: 048
     Dates: start: 20070301, end: 20070901
  3. SINGULAIR [Suspect]
     Indication: ASTHMA
     Dosage: 4 MG 1X DAY ORAL
     Route: 048
     Dates: start: 20080301, end: 20080501
  4. SINGULAIR [Suspect]
     Indication: HYPERSENSITIVITY
     Dosage: 4 MG 1X DAY ORAL
     Route: 048
     Dates: start: 20080301, end: 20080501

REACTIONS (5)
  - ABNORMAL BEHAVIOUR [None]
  - AGITATION [None]
  - IRRITABILITY [None]
  - MOOD ALTERED [None]
  - SELF ESTEEM DECREASED [None]
